FAERS Safety Report 13456004 (Version 1)
Quarter: 2017Q2

REPORT INFORMATION
  Report Type: Report from Study
  Country: US (occurrence: US)
  Receive Date: 20170418
  Receipt Date: 20170418
  Transmission Date: 20170830
  Serious: Yes (Other)
  Sender: FDA-Public Use
  Company Number: US-PFIZER INC-2010173209

PATIENT
  Age: 26 Year
  Sex: Female

DRUGS (3)
  1. CRIZOTINIB [Suspect]
     Active Substance: CRIZOTINIB
     Indication: NON-SMALL CELL LUNG CANCER
     Dosage: 250 MG, 2X/DAY (IN 28-DAY CYCLES)
     Route: 050
     Dates: start: 20100122
  2. ALOE BARBADENSIS [Concomitant]
     Indication: SUPPLEMENTATION THERAPY
     Dosage: UNK, AS NEEDED
     Route: 050
     Dates: start: 20100914
  3. FISH OIL [Concomitant]
     Active Substance: FISH OIL
     Indication: NUTRITIONAL SUPPLEMENTATION
     Dosage: UNK, 1X/DAY
     Route: 050
     Dates: start: 2010

REACTIONS (1)
  - Abortion spontaneous [Recovered/Resolved]

NARRATIVE: CASE EVENT DATE: 20101201
